FAERS Safety Report 9701882 (Version 1)
Quarter: 2013Q4

REPORT INFORMATION
  Report Type: Spontaneous
  Country: US (occurrence: None)
  Receive Date: 20131120
  Receipt Date: 20131120
  Transmission Date: 20140711
  Serious: Yes (Other)
  Sender: FDA-Public Use
  Company Number: None

PATIENT
  Sex: 0
  Weight: 53 kg

DRUGS (1)
  1. ROC RETINOL [Suspect]
     Dosage: A TINY DOT, 2X DAY, TOPICAL
     Route: 061

REACTIONS (1)
  - Eyelid ptosis [None]
